FAERS Safety Report 13535607 (Version 7)
Quarter: 2017Q3

REPORT INFORMATION
  Report Type: Report from Study
  Country: FR (occurrence: FR)
  Receive Date: 20170511
  Receipt Date: 20170906
  Transmission Date: 20171127
  Serious: Yes (Death, Other)
  Sender: FDA-Public Use
  Company Number: PHHO2012FR017553

PATIENT
  Age: 68 Year
  Sex: Female
  Weight: 56 kg

DRUGS (6)
  1. DERMALIBOUR [Concomitant]
     Indication: PRODUCT USED FOR UNKNOWN INDICATION
     Dosage: UNK
     Route: 065
     Dates: start: 20111103, end: 20111129
  2. CGP 41251 [Suspect]
     Active Substance: MIDOSTAURIN
     Indication: SYSTEMIC MASTOCYTOSIS
     Dosage: 100 MG, BID
     Route: 048
     Dates: start: 20111018, end: 20111101
  3. DIPROSONE [Concomitant]
     Active Substance: BETAMETHASONE DIPROPIONATE
     Indication: PRODUCT USED FOR UNKNOWN INDICATION
     Dosage: UNK
     Route: 065
     Dates: start: 20111103, end: 20111212
  4. AERIUS [Concomitant]
     Active Substance: DESLORATADINE
     Indication: PRODUCT USED FOR UNKNOWN INDICATION
     Dosage: 5 MG, BID
     Route: 065
     Dates: start: 20111107, end: 20120110
  5. CGP 41251 [Suspect]
     Active Substance: MIDOSTAURIN
     Dosage: 100 MG, BID
     Route: 048
     Dates: start: 20111129, end: 20140205
  6. CGP 41251 [Suspect]
     Active Substance: MIDOSTAURIN
     Dosage: 50 MG, BID (RESTARTED AT HALF DOSE)
     Route: 048
     Dates: start: 20111120, end: 20111128

REACTIONS (5)
  - Squamous cell carcinoma [Recovered/Resolved]
  - Squamous cell carcinoma [Recovered/Resolved]
  - Systemic mastocytosis [Fatal]
  - Basal cell carcinoma [Recovered/Resolved]
  - Malignant neoplasm progression [Fatal]

NARRATIVE: CASE EVENT DATE: 20120701
